FAERS Safety Report 10255883 (Version 1)
Quarter: 2014Q2

REPORT INFORMATION
  Report Type: Report from Study
  Country: US (occurrence: US)
  Receive Date: 20140624
  Receipt Date: 20140624
  Transmission Date: 20141212
  Serious: Yes (Hospitalization)
  Sender: FDA-Public Use
  Company Number: US-BRISTOL-MYERS SQUIBB COMPANY-21040373

PATIENT
  Age: 62 Year
  Sex: Male
  Weight: 90.7 kg

DRUGS (1)
  1. IPILIMUMAB [Suspect]
     Indication: MALIGNANT MELANOMA
     Dosage: TOTAL DOSE: 930MG?LAST ADM:25APR14?90 MINS, Q 3 WEEKS X 4 DOSES
     Route: 042
     Dates: start: 20130426, end: 20140425

REACTIONS (1)
  - Calculus ureteric [Unknown]
